FAERS Safety Report 6405124-5 (Version None)
Quarter: 2009Q4

REPORT INFORMATION
  Report Type: 
  Country: None (occurrence: None)
  Receive Date: 20091016
  Receipt Date: 20091016
  Transmission Date: 20100525
  Serious: No
  Sender: FDA-Public Use
  Company Number: None

PATIENT

DRUGS (1)
  1. REGLAN [Suspect]

REACTIONS (6)
  - ANAEMIA [None]
  - DIZZINESS [None]
  - DYSKINESIA [None]
  - EXCESSIVE EYE BLINKING [None]
  - NERVOUSNESS [None]
  - STEREOTYPY [None]
